FAERS Safety Report 5937668-4 (Version None)
Quarter: 2008Q4

REPORT INFORMATION
  Report Type: 
  Country: None (occurrence: None)
  Receive Date: 20081031
  Receipt Date: 20080402
  Transmission Date: 20090506
  Serious: No
  Sender: FDA-Public Use
  Company Number: US-BAYER-200811391BCC

PATIENT
  Sex: Female
  Weight: 50 kg

DRUGS (1)
  1. ALEVE [Suspect]
     Indication: MIGRAINE
     Dosage: UNIT DOSE: 220 MG
     Route: 048

REACTIONS (1)
  - MIGRAINE [None]
